FAERS Safety Report 22023772 (Version 1)
Quarter: 2023Q1

REPORT INFORMATION
  Report Type: Spontaneous
  Country: US (occurrence: None)
  Receive Date: 20230223
  Receipt Date: 20230223
  Transmission Date: 20230417
  Serious: Yes (Other)
  Sender: FDA-Public Use
  Company Number: US-ROCHE-3011536

PATIENT
  Sex: Female
  Weight: 112 kg

DRUGS (1)
  1. XOLAIR [Suspect]
     Active Substance: OMALIZUMAB
     Indication: Idiopathic urticaria
     Dosage: LAST DOSE OF XOLAIR ON 28/JAN/2022
     Route: 058
     Dates: start: 20201110

REACTIONS (3)
  - Breast cancer [Unknown]
  - Nausea [Unknown]
  - Off label use [Unknown]
